FAERS Safety Report 9580056 (Version 3)
Quarter: 2013Q4

REPORT INFORMATION
  Report Type: Report from Study
  Country: US (occurrence: US)
  Receive Date: 20131002
  Receipt Date: 20131115
  Transmission Date: 20140711
  Serious: Yes (Other)
  Sender: FDA-Public Use
  Company Number: US-JNJFOC-20130914797

PATIENT
  Age: 61 Year
  Sex: Female
  Weight: 45.36 kg

DRUGS (18)
  1. REMICADE [Suspect]
     Indication: COLITIS ULCERATIVE
     Route: 042
     Dates: start: 201307
  2. REMICADE [Suspect]
     Indication: COLITIS ULCERATIVE
     Route: 042
  3. REMICADE [Suspect]
     Indication: CROHN^S DISEASE
     Route: 042
  4. REMICADE [Suspect]
     Indication: CROHN^S DISEASE
     Route: 042
     Dates: start: 201307
  5. APRISO [Concomitant]
     Indication: COLITIS ULCERATIVE
     Route: 048
  6. LORAZEPAM [Concomitant]
     Route: 065
  7. HYDROMORPHONE [Concomitant]
     Indication: PAIN
     Dosage: 1 TABLET 4-5 TIMES A DAY, PRN
     Route: 065
  8. REMERON [Concomitant]
     Route: 065
  9. COLACE [Concomitant]
     Route: 065
  10. ZOFRAN [Concomitant]
     Route: 065
  11. VITAMINE E [Concomitant]
     Route: 065
  12. COQ10 [Concomitant]
     Route: 065
  13. PROBIOTIC PEARLS ADVANTAGE [Concomitant]
     Route: 065
  14. ASCORBIC ACID [Concomitant]
     Route: 065
  15. VITAMIN B COMPLEX [Concomitant]
     Route: 065
  16. VITAMIN B 12 [Concomitant]
     Route: 060
  17. VITAMIN D3 [Concomitant]
     Route: 065
  18. CALCIUM AND MAGNESIUM [Concomitant]
     Route: 065

REACTIONS (9)
  - Tremor [Not Recovered/Not Resolved]
  - Depression [Not Recovered/Not Resolved]
  - Eye movement disorder [Unknown]
  - Muscular weakness [Not Recovered/Not Resolved]
  - Mood swings [Not Recovered/Not Resolved]
  - Malaise [Recovered/Resolved]
  - Crying [Not Recovered/Not Resolved]
  - Hyperhidrosis [Not Recovered/Not Resolved]
  - Gingival pain [Not Recovered/Not Resolved]
